FAERS Safety Report 5165493-3 (Version None)
Quarter: 2006Q4

REPORT INFORMATION
  Report Type: 
  Country: None (occurrence: None)
  Receive Date: 20061121
  Receipt Date: 20061108
  Transmission Date: 20070319
  Serious: Yes (Hospitalization)
  Sender: FDA-Public Use
  Company Number: CAWYE480509NOV06

PATIENT
  Sex: Female

DRUGS (1)
  1. NEUMEGA            (OPRELVEKIN, INJECTION, 0) [Suspect]
     Indication: IDIOPATHIC THROMBOCYTOPENIC PURPURA
     Dosage: SC       2 TREATMENTS
     Route: 058
     Dates: start: 20060801

REACTIONS (3)
  - CYSTITIS [None]
  - DRUG INEFFECTIVE FOR UNAPPROVED INDICATION [None]
  - NEPHRITIS INTERSTITIAL [None]
